FAERS Safety Report 12009685 (Version 1)
Quarter: 2016Q1

REPORT INFORMATION
  Report Type: Spontaneous
  Country: US (occurrence: US)
  Receive Date: 20160205
  Receipt Date: 20160205
  Transmission Date: 20160526
  Serious: No
  Sender: FDA-Public Use
  Company Number: US-PFIZER INC-2016067435

PATIENT
  Age: 48 Year
  Sex: Female
  Weight: 69 kg

DRUGS (1)
  1. IBRANCE [Suspect]
     Active Substance: PALBOCICLIB
     Indication: BREAST CANCER METASTATIC
     Dosage: 100 MG ONCE A DAY 3 WEEKS; 1 WEEK OFF
     Dates: start: 201512, end: 20160121

REACTIONS (2)
  - Disease progression [Not Recovered/Not Resolved]
  - Breast cancer metastatic [Not Recovered/Not Resolved]

NARRATIVE: CASE EVENT DATE: 20160112
